FAERS Safety Report 10205931 (Version 6)
Quarter: 2016Q2

REPORT INFORMATION
  Report Type: Spontaneous
  Country: US (occurrence: US)
  Receive Date: 20140530
  Receipt Date: 20160405
  Transmission Date: 20160815
  Serious: No
  Sender: FDA-Public Use
  Company Number: US-ROCHE-1380478

PATIENT
  Age: 68 Year
  Sex: Female
  Weight: 90.35 kg

DRUGS (16)
  1. ERIVEDGE [Suspect]
     Active Substance: VISMODEGIB
     Route: 048
     Dates: start: 20120716, end: 20140513
  2. PRAVASTATIN [Concomitant]
     Active Substance: PRAVASTATIN\PRAVASTATIN SODIUM
     Indication: HYPERCHOLESTEROLAEMIA
     Dosage: START DATE: 2 YEARS AGO
     Route: 048
  3. HYDROCHLOROTHIAZIDE/LOSARTAN POTASSIUM [Concomitant]
     Active Substance: HYDROCHLOROTHIAZIDE\LOSARTAN POTASSIUM
     Indication: BLOOD PRESSURE MEASUREMENT
     Dosage: START DATE: COUPLE OF YEARS. DOSE 50/12.5MG
     Route: 048
  4. VITAMIN D3 [Concomitant]
     Active Substance: CHOLECALCIFEROL
     Indication: NUTRITIONAL SUPPLEMENTATION
     Dosage: TAKING FOR 3 YEARS. DOSE 1000UNITS
     Route: 048
  5. ERIVEDGE [Suspect]
     Active Substance: VISMODEGIB
     Indication: BASAL CELL CARCINOMA
     Dosage: STARTED 2 YEARS AGO
     Route: 048
     Dates: start: 20120520
  6. LEXAPRO [Concomitant]
     Active Substance: ESCITALOPRAM OXALATE
     Indication: DEPRESSION
     Dosage: START DATE: 9-10 YEARS AGO
     Route: 048
  7. METFORMIN HYDROCHLORIDE. [Concomitant]
     Active Substance: METFORMIN HYDROCHLORIDE
     Indication: DIABETES MELLITUS
     Dosage: START DATE: 10 YEARS
     Route: 048
  8. MELATONIN [Concomitant]
     Active Substance: MELATONIN
     Indication: SLEEP DISORDER
     Route: 048
  9. ERIVEDGE [Suspect]
     Active Substance: VISMODEGIB
     Dosage: RESTARTED ON AN UNSPECIFIED DATE.
     Route: 048
  10. LOSARTAN. [Concomitant]
     Active Substance: LOSARTAN
     Indication: BLOOD PRESSURE MEASUREMENT
     Route: 048
  11. ERIVEDGE [Suspect]
     Active Substance: VISMODEGIB
     Dosage: ON 14/JUL/2012, RECEIVED THE SAME DOSE
     Route: 048
     Dates: start: 20120701
  12. IBUPROFEN. [Concomitant]
     Active Substance: IBUPROFEN
     Indication: PAIN
     Route: 048
  13. ATENOLOL. [Concomitant]
     Active Substance: ATENOLOL
  14. ERIVEDGE [Suspect]
     Active Substance: VISMODEGIB
     Route: 048
     Dates: end: 20150701
  15. VITAMIN D3 [Concomitant]
     Active Substance: CHOLECALCIFEROL
     Indication: ANAEMIA
     Route: 048
  16. OMEPRAZOLE. [Concomitant]
     Active Substance: OMEPRAZOLE
     Indication: GASTROOESOPHAGEAL REFLUX DISEASE
     Route: 048

REACTIONS (9)
  - Diverticulitis [Unknown]
  - Basal cell carcinoma [Not Recovered/Not Resolved]
  - Skin ulcer [Unknown]
  - Hair disorder [Recovered/Resolved]
  - Rhinorrhoea [Not Recovered/Not Resolved]
  - Dry skin [Recovering/Resolving]
  - Muscle spasms [Unknown]
  - Diaphragmalgia [Unknown]
  - Cystitis [Unknown]

NARRATIVE: CASE EVENT DATE: 20140417
